FAERS Safety Report 6240064-6 (Version None)
Quarter: 2009Q2

REPORT INFORMATION
  Report Type: 
  Country: None (occurrence: None)
  Receive Date: 20090618
  Receipt Date: 20090618
  Transmission Date: 20091009
  Serious: Yes (Other)
  Sender: FDA-Public Use
  Company Number: None

PATIENT
  Age: 48 Year
  Sex: Female
  Weight: 99.7913 kg

DRUGS (1)
  1. REQUIP [Suspect]
     Indication: RESTLESS LEGS SYNDROME
     Dosage: 2 MGS DAILY PO
     Route: 048
     Dates: start: 20061001, end: 20090401

REACTIONS (2)
  - COMPULSIVE SHOPPING [None]
  - ECONOMIC PROBLEM [None]
